FAERS Safety Report 8432661-4 (Version None)
Quarter: 2012Q2

REPORT INFORMATION
  Report Type: 
  Country: None (occurrence: None)
  Receive Date: 20120323
  Receipt Date: 20110804
  Transmission Date: 20120825
  Serious: Yes (Hospitalization)
  Sender: FDA-Public Use
  Company Number: 163-21880-11060470

PATIENT
  Age: 65 Year
  Sex: Male
  Weight: 72.3 kg

DRUGS (14)
  1. IVIG (IMMUNOGLOBULINS) (UNKNOWN) [Concomitant]
  2. ALLEGRA (FEXOFENADINE HYDROCHLORIDE) (UNKNOWN) [Concomitant]
  3. ERTAPENEM (ERTAPENEM) (UNKNOWN) [Concomitant]
  4. INSULIN (INSULIN) (UNKNOWN) [Concomitant]
  5. VANCOMYCIN [Concomitant]
  6. DECADRON [Concomitant]
  7. PROCRIT [Concomitant]
  8. ATIVAN [Concomitant]
  9. K-TAB (POTASSIUM CHLORIDE) (UNKNOWN) [Concomitant]
  10. REVLIMID [Suspect]
     Indication: MULTIPLE MYELOMA
     Dosage: 25 MG, DAILY X 21 DAYS EVER 28 DAYS, PO
     Route: 048
     Dates: start: 20100330, end: 20110420
  11. NICOTINE (NICOTINE) (POULTICE OR PATCH) [Concomitant]
  12. LIBRIUM (CHLORDIAZEPOXIDE HYDROCHLORIDE) (UNKNOWN) [Concomitant]
  13. PROTONIX (PANTOPRAZOLE) (UNKNOWN) [Concomitant]
  14. SIMVASTATIN [Concomitant]

REACTIONS (1)
  - PERINEAL ABSCESS [None]
